FAERS Safety Report 5409728-8 (Version None)
Quarter: 2007Q3

REPORT INFORMATION
  Report Type: 
  Country: None (occurrence: None)
  Receive Date: 20070809
  Receipt Date: 20070731
  Transmission Date: 20080115
  Serious: Yes (Hospitalization)
  Sender: FDA-Public Use
  Company Number: B0470567A

PATIENT
  Age: 75 Year
  Sex: Female
  Weight: 70 kg

DRUGS (8)
  1. AVANDIA [Suspect]
     Dosage: 4MG PER DAY
     Route: 048
     Dates: start: 20030101
  2. PANTOPRAZOLE SODIUM [Concomitant]
     Dosage: 40MG PER DAY
     Dates: start: 20020101
  3. SPASMOMEN [Concomitant]
     Dates: start: 20010101
  4. NOVONORM [Concomitant]
     Dosage: 2MG THREE TIMES PER DAY
     Dates: start: 20000101
  5. PRAVASINE [Concomitant]
     Dosage: 40MG PER DAY
     Dates: start: 20030101
  6. COZAAR [Concomitant]
     Indication: HYPERTENSION
     Dates: start: 20000101
  7. MOXON [Concomitant]
     Indication: HYPERTENSION
     Dosage: .4MG PER DAY
     Dates: start: 20000101
  8. ZOPICLONE [Concomitant]
     Indication: SLEEP DISORDER
     Dates: start: 20040901

REACTIONS (2)
  - ANKLE FRACTURE [None]
  - FALL [None]
